FAERS Safety Report 16177833 (Version 2)
Quarter: 2019Q2

REPORT INFORMATION
  Report Type: Spontaneous
  Country: IT (occurrence: IT)
  Receive Date: 20190410
  Receipt Date: 20190506
  Transmission Date: 20190711
  Serious: Yes (Hospitalization)
  Sender: FDA-Public Use
  Company Number: IT-TEVA-2019-IT-1034029

PATIENT
  Age: 32 Year
  Sex: Male

DRUGS (5)
  1. CYCLOSERINE. [Concomitant]
     Active Substance: CYCLOSERINE
     Dosage: 1 GRAM DAILY;
  2. MOXIFLOXACIN. [Concomitant]
     Active Substance: MOXIFLOXACIN
     Dosage: 400 MILLIGRAM DAILY;
  3. CAPREOMYCIN SULFATE. [Concomitant]
     Active Substance: CAPREOMYCIN SULFATE
     Dosage: 1 GRAM DAILY;
  4. ETHAMBUTOL [Suspect]
     Active Substance: ETHAMBUTOL HYDROCHLORIDE
     Indication: PULMONARY TUBERCULOSIS
     Dosage: 1.2 GRAM DAILY;
     Route: 048
     Dates: start: 20180320, end: 20190117
  5. LINEZOLID. [Suspect]
     Active Substance: LINEZOLID
     Route: 048
     Dates: start: 20180320, end: 20190117

REACTIONS (2)
  - Optic neuritis [Recovering/Resolving]
  - Visual acuity reduced [Recovering/Resolving]

NARRATIVE: CASE EVENT DATE: 20181217
